FAERS Safety Report 20732628 (Version 4)
Quarter: 2022Q3

REPORT INFORMATION
  Report Type: Report from Study
  Country: US (occurrence: US)
  Receive Date: 20220420
  Receipt Date: 20220829
  Transmission Date: 20221026
  Serious: Yes (Other)
  Sender: FDA-Public Use
  Company Number: US-NOVARTISPH-NVSC2022US085633

PATIENT
  Sex: Female

DRUGS (1)
  1. KESIMPTA [Suspect]
     Active Substance: OFATUMUMAB
     Indication: Product used for unknown indication
     Dosage: UNK
     Route: 065

REACTIONS (17)
  - Bladder cancer [Unknown]
  - Pulmonary mass [Unknown]
  - Mood swings [Unknown]
  - Weight decreased [Unknown]
  - Diarrhoea [Unknown]
  - Headache [Unknown]
  - Urinary tract infection [Unknown]
  - Blood urine present [Unknown]
  - Influenza like illness [Unknown]
  - Asthenia [Unknown]
  - Vomiting [Unknown]
  - Migraine [Unknown]
  - Respiratory symptom [Unknown]
  - Dyspnoea [Unknown]
  - Cough [Unknown]
  - Sneezing [Unknown]
  - Fall [Unknown]
